FAERS Safety Report 16242543 (Version 1)
Quarter: 2019Q2

REPORT INFORMATION
  Report Type: Spontaneous
  Country: US (occurrence: US)
  Receive Date: 20190426
  Receipt Date: 20190426
  Transmission Date: 20190711
  Serious: No
  Sender: FDA-Public Use
  Company Number: US-TEVA-2019-US-1040815

PATIENT
  Sex: Female

DRUGS (1)
  1. ADRUCIL [Suspect]
     Active Substance: FLUOROURACIL
     Indication: PAGET^S DISEASE OF THE VULVA

REACTIONS (2)
  - Injection site pain [Recovered/Resolved]
  - Wrong technique in product usage process [Unknown]
